FAERS Safety Report 4938423-4 (Version None)
Quarter: 2006Q1

REPORT INFORMATION
  Report Type: 
  Country: None (occurrence: None)
  Receive Date: 20060309
  Receipt Date: 20060302
  Transmission Date: 20060701
  Serious: Yes (Hospitalization)
  Sender: FDA-Public Use
  Company Number: US-BRISTOL-MYERS SQUIBB COMPANY-13301635

PATIENT
  Age: 83 Year
  Sex: Female

DRUGS (1)
  1. ERBITUX [Suspect]
     Indication: NEOPLASM MALIGNANT
     Route: 042
     Dates: start: 20060228, end: 20060228

REACTIONS (4)
  - CHILLS [None]
  - HEADACHE [None]
  - PYREXIA [None]
  - TREMOR [None]
